FAERS Safety Report 5905811-9 (Version None)
Quarter: 2008Q4

REPORT INFORMATION
  Report Type: 
  Country: None (occurrence: None)
  Receive Date: 20081002
  Receipt Date: 20080923
  Transmission Date: 20090506
  Serious: Yes (Other)
  Sender: FDA-Public Use
  Company Number: B0538338A

PATIENT

DRUGS (1)
  1. NARATRIPTAN [Suspect]
     Indication: MIGRAINE
     Dates: start: 20080421, end: 20080421

REACTIONS (2)
  - FEEDING DISORDER OF INFANCY OR EARLY CHILDHOOD [None]
  - VOMITING [None]
